FAERS Safety Report 4804082-4 (Version None)
Quarter: 2005Q4

REPORT INFORMATION
  Report Type: 
  Country: None (occurrence: None)
  Receive Date: 20051020
  Receipt Date: 20050812
  Transmission Date: 20060501
  Serious: Yes (Other)
  Sender: FDA-Public Use
  Company Number: JP-BOEHRINGER INGELHEIM PHARMACEUTICALS, INC.-2005-BP-16285YA

PATIENT
  Sex: Male

DRUGS (1)
  1. HARNAL [Suspect]
     Route: 048

REACTIONS (1)
  - BLOOD GLUCOSE DECREASED [None]
